FAERS Safety Report 12770618 (Version 2)
Quarter: 2017Q2

REPORT INFORMATION
  Report Type: Report from Study
  Country: None (occurrence: AT)
  Receive Date: 20160922
  Receipt Date: 20170421
  Transmission Date: 20170830
  Serious: Yes (Death, Hospitalization)
  Sender: FDA-Public Use
  Company Number: AT-ABBVIE-16P-009-1645695-00

PATIENT
  Age: 74 Year
  Sex: Female

DRUGS (29)
  1. KCL-RET SLOW-K [Concomitant]
     Indication: PRODUCT USED FOR UNKNOWN INDICATION
     Dosage: FREQUENCY-1-0-0
     Route: 048
  2. PK MERZ [Concomitant]
     Active Substance: AMANTADINE SULFATE
     Indication: PRODUCT USED FOR UNKNOWN INDICATION
     Dosage: FREQUENCY- 1-1-0
     Route: 048
  3. SEROQUEL [Concomitant]
     Active Substance: QUETIAPINE FUMARATE
     Indication: PRODUCT USED FOR UNKNOWN INDICATION
     Dosage: FREQUENCY- 0-0-0-1
  4. ATARAX [Concomitant]
     Active Substance: HYDROXYZINE HYDROCHLORIDE
     Indication: PRODUCT USED FOR UNKNOWN INDICATION
     Dosage: AT OFF-PHASES UP TO 3 TIMES A DAY
  5. HYDAL RET [Concomitant]
     Indication: PRODUCT USED FOR UNKNOWN INDICATION
     Dosage: FREQUENCY- 2-0-0-2
     Route: 048
  6. THROMBO ASS [Concomitant]
     Active Substance: ASPIRIN
     Indication: PRODUCT USED FOR UNKNOWN INDICATION
     Dosage: FREQUENCY- 0-1-0
     Route: 048
     Dates: start: 20160916
  7. LOVENOX SPRAMP [Concomitant]
     Indication: PRODUCT USED FOR UNKNOWN INDICATION
     Dosage: FREQUENCY 0-0-1
  8. MADOPAR [Concomitant]
     Active Substance: BENSERAZIDE HYDROCHLORIDE\LEVODOPA
     Indication: PRODUCT USED FOR UNKNOWN INDICATION
     Dosage: 100/25 MG, FREQUENCY- 1-0-0; AT OFF PHASE
     Dates: start: 20160916
  9. CALCIUM GLYCEROPHOSPHATE\CELLULOSE\POLYETHYLENE GLYCOL\SACCHARIN SODIUM\SODIUM HYDROXIDE\SODIUM LAURYL SULFATE\SODIUM MAGNESIUM SILICATE\SODIUM MONOFLUOROPHOSPHATE\SORBITOL\WATER [Concomitant]
     Active Substance: CALCIUM GLYCEROPHOSPHATE\POLYETHYLENE GLYCOLS\POWDERED CELLULOSE\SACCHARIN SODIUM DIHYDRATE\SODIUM HYDROXIDE\SODIUM LAURYL SULFATE\SODIUM MAGNESIUM SILICATE\SODIUM MONOFLUOROPHOSPHATE\SORBITOL\WATER
     Indication: CONSTIPATION
     Dosage: IN CASE OF CONSTIPATION
  10. PARACETAMOL KABI [Concomitant]
     Active Substance: ACETAMINOPHEN
     Indication: PRODUCT USED FOR UNKNOWN INDICATION
     Dosage: UP TO 3 TIMES A DAY
  11. DUODOPA [Suspect]
     Active Substance: CARBIDOPA\LEVODOPA
     Dosage: CR: 2.8ML/H
     Route: 050
     Dates: start: 2016
  12. CITALOPRAM RTP [Concomitant]
     Indication: PRODUCT USED FOR UNKNOWN INDICATION
     Dosage: FREQUENCY- 0.5-0-0
     Route: 048
  13. FOLSAN [Concomitant]
     Active Substance: FOLIC ACID
     Indication: PRODUCT USED FOR UNKNOWN INDICATION
     Dosage: FREQUENCY- 1-0-0
     Route: 048
  14. RINGER [Concomitant]
     Indication: PRODUCT USED FOR UNKNOWN INDICATION
     Dosage: FREQUENCY- 1-0-1
     Route: 042
  15. ZOFRAN [Concomitant]
     Active Substance: ONDANSETRON HYDROCHLORIDE
     Indication: NAUSEA
     Dosage: IN CASE OF NAUSEA
  16. CALCIDURAN [Concomitant]
     Indication: PRODUCT USED FOR UNKNOWN INDICATION
     Dosage: 500 MG/800IE, FREQUENCY 1-0-0
     Route: 048
  17. PRAXITEN [Concomitant]
     Active Substance: OXAZEPAM
     Indication: PRODUCT USED FOR UNKNOWN INDICATION
     Dosage: FREQUENCY- 0-0-0-1
     Route: 048
  18. CURAM [Concomitant]
     Active Substance: AMOXICILLIN\CLAVULANATE POTASSIUM
     Indication: PRODUCT USED FOR UNKNOWN INDICATION
     Dosage: 2000/200 MG, FREQUENCY- 1-1-1
     Route: 042
  19. HYDAL [Concomitant]
     Active Substance: HYDROMORPHONE HYDROCHLORIDE
     Indication: PAIN
     Dosage: UP TO 4 TIMES A DAY FOR ACUTE PAIN
  20. PRAXITEN [Concomitant]
     Active Substance: OXAZEPAM
     Indication: SLEEP DISORDER
  21. DUODOPA [Suspect]
     Active Substance: CARBIDOPA\LEVODOPA
     Dosage: DAILY 16 H PUMP THERAPY: MD: 7, CR DAYTIME: 2.2, ED: 0.6
     Route: 050
  22. PANTOLOC [Concomitant]
     Active Substance: PANTOPRAZOLE SODIUM
     Indication: PRODUCT USED FOR UNKNOWN INDICATION
     Dosage: FREQUENCY- 1-0-1
     Route: 048
  23. MIRTABENE [Concomitant]
     Active Substance: MIRTAZAPINE
     Indication: PRODUCT USED FOR UNKNOWN INDICATION
     Dosage: FREQUENCY 0-0-0-1
     Route: 048
     Dates: start: 20160916
  24. UNASYN [Concomitant]
     Active Substance: AMPICILLIN SODIUM\SULBACTAM SODIUM
     Indication: PRODUCT USED FOR UNKNOWN INDICATION
     Dosage: FREQUENCY 1-1-1
     Route: 042
     Dates: start: 20160916
  25. DUODOPA [Suspect]
     Active Substance: CARBIDOPA\LEVODOPA
     Indication: PARKINSON^S DISEASE
     Dosage: 16 H THERAPY: MD: 7.5 ML, CR: 3.4 ML/H, ED: 0.6 ML
     Route: 050
     Dates: start: 20140331
  26. NEUROMULTIVIT [Concomitant]
     Active Substance: CYANOCOBALAMIN\PYRIDOXINE\THIAMINE
     Indication: PRODUCT USED FOR UNKNOWN INDICATION
     Dosage: FREQUENCY-1-0-0
     Route: 048
  27. FORTIMEL COMPACT [Concomitant]
     Indication: PRODUCT USED FOR UNKNOWN INDICATION
     Dosage: FREQUENCY 1-1-0
     Dates: start: 20160916
  28. ISOSOURCE STANDARD FIBRE SMARTFLEX [Concomitant]
     Indication: PRODUCT USED FOR UNKNOWN INDICATION
  29. SIMVASTATIN +PH [Concomitant]
     Indication: PRODUCT USED FOR UNKNOWN INDICATION
     Dosage: FREQUENCY- 1-0-0

REACTIONS (11)
  - Lumbar vertebral fracture [Recovering/Resolving]
  - Clostridium test positive [Recovering/Resolving]
  - Urinary tract infection [Recovering/Resolving]
  - Thoracic vertebral fracture [Recovering/Resolving]
  - Hepatic cancer [Fatal]
  - Enterobacter infection [Recovering/Resolving]
  - Stoma site reaction [Recovering/Resolving]
  - Stoma site discharge [Unknown]
  - Device issue [Unknown]
  - Candida infection [Recovering/Resolving]
  - Stoma site erythema [Unknown]

NARRATIVE: CASE EVENT DATE: 20160714
